FAERS Safety Report 5405459-9 (Version None)
Quarter: 2007Q3

REPORT INFORMATION
  Report Type: 
  Country: None (occurrence: None)
  Receive Date: 20070803
  Receipt Date: 20070727
  Transmission Date: 20080115
  Serious: Yes (Life-Threatening, Hospitalization, Other)
  Sender: FDA-Public Use
  Company Number: US-PFIZER INC-2007046627

PATIENT
  Age: 44 Year
  Sex: Male
  Weight: 83.9 kg

DRUGS (2)
  1. LYRICA [Suspect]
     Indication: TENSION HEADACHE
     Route: 048
     Dates: start: 20051201, end: 20061130
  2. NORTRIPTYLINE HCL [Concomitant]

REACTIONS (6)
  - ACTIVITIES OF DAILY LIVING IMPAIRED [None]
  - ANXIETY [None]
  - DRUG DEPENDENCE [None]
  - FRUSTRATION [None]
  - SUICIDAL IDEATION [None]
  - WEIGHT INCREASED [None]
